FAERS Safety Report 16024198 (Version 2)
Quarter: 2019Q2

REPORT INFORMATION
  Report Type: Spontaneous
  Country: US (occurrence: US)
  Receive Date: 20190301
  Receipt Date: 20190424
  Transmission Date: 20190711
  Serious: Yes (Hospitalization)
  Sender: FDA-Public Use
  Company Number: US-VIFOR (INTERNATIONAL) INC.-VIT-2019-01794

PATIENT
  Sex: Male
  Weight: 89 kg

DRUGS (18)
  1. AMITRIPTYLINE [Concomitant]
     Active Substance: AMITRIPTYLINE
  2. VELTASSA [Suspect]
     Active Substance: PATIROMER
     Indication: HYPERKALAEMIA
     Dates: start: 20190222
  3. CLONIDINE. [Concomitant]
     Active Substance: CLONIDINE
     Route: 062
  4. REGLAN [Concomitant]
     Active Substance: METOCLOPRAMIDE HYDROCHLORIDE
  5. ATORVASTATIN [Concomitant]
     Active Substance: ATORVASTATIN
  6. HYDRALAZINE [Concomitant]
     Active Substance: HYDRALAZINE HYDROCHLORIDE
  7. GABAPENTIN. [Concomitant]
     Active Substance: GABAPENTIN
  8. CELEXA [Concomitant]
     Active Substance: CITALOPRAM HYDROBROMIDE
  9. RENVELA [Concomitant]
     Active Substance: SEVELAMER CARBONATE
  10. PROTONIX [Concomitant]
     Active Substance: PANTOPRAZOLE SODIUM
  11. GLARGINE INSULIN [Concomitant]
     Active Substance: INSULIN GLARGINE
     Route: 058
  12. RESTORIL [Concomitant]
     Active Substance: TEMAZEPAM
  13. ASPIRIN. [Concomitant]
     Active Substance: ASPIRIN
  14. BUPROPION XL [Concomitant]
     Active Substance: BUPROPION
  15. COREG [Concomitant]
     Active Substance: CARVEDILOL
  16. LISPRO INSULIN [Concomitant]
     Active Substance: INSULIN LISPRO
     Route: 058
  17. ZOFRAN [Concomitant]
     Active Substance: ONDANSETRON HYDROCHLORIDE
     Indication: NAUSEA
  18. LISINOPRIL. [Concomitant]
     Active Substance: LISINOPRIL

REACTIONS (1)
  - Impaired gastric emptying [Not Recovered/Not Resolved]

NARRATIVE: CASE EVENT DATE: 2019
